FAERS Safety Report 11238006 (Version 1)
Quarter: 2015Q3

REPORT INFORMATION
  Report Type: Spontaneous
  Country: US (occurrence: US)
  Receive Date: 20150703
  Receipt Date: 20150703
  Transmission Date: 20151125
  Serious: Yes (Death)
  Sender: FDA-Public Use
  Company Number: US-ASTRAZENECA-2015SE63475

PATIENT
  Sex: Female

DRUGS (5)
  1. JANUMET [Suspect]
     Active Substance: METFORMIN HYDROCHLORIDE\SITAGLIPTIN PHOSPHATE
     Route: 065
     Dates: start: 2011, end: 2013
  2. VICTOZA [Suspect]
     Active Substance: LIRAGLUTIDE
     Route: 065
     Dates: start: 2011, end: 2013
  3. TRADJENTA [Suspect]
     Active Substance: LINAGLIPTIN
     Route: 065
     Dates: start: 2011, end: 2013
  4. BYETTA [Suspect]
     Active Substance: EXENATIDE
     Route: 065
     Dates: start: 2011, end: 2013
  5. JANUVIA [Suspect]
     Active Substance: SITAGLIPTIN PHOSPHATE
     Route: 065
     Dates: start: 2011, end: 2013

REACTIONS (1)
  - Pancreatic carcinoma [Fatal]

NARRATIVE: CASE EVENT DATE: 20121001
